FAERS Safety Report 7488232-X (Version None)
Quarter: 2011Q2

REPORT INFORMATION
  Report Type: 
  Country: None (occurrence: None)
  Receive Date: 20110518
  Receipt Date: 20110510
  Transmission Date: 20111010
  Serious: Yes (Life-Threatening, Hospitalization)
  Sender: FDA-Public Use
  Company Number: ZA-ASTRAZENECA-2011SE28970

PATIENT
  Sex: Male

DRUGS (1)
  1. NAROPIN [Suspect]
     Route: 041

REACTIONS (3)
  - RESPIRATORY ARREST [None]
  - ENDOTRACHEAL INTUBATION [None]
  - INCORRECT ROUTE OF DRUG ADMINISTRATION [None]
